FAERS Safety Report 6682040-5 (Version None)
Quarter: 2010Q2

REPORT INFORMATION
  Report Type: 
  Country: None (occurrence: None)
  Receive Date: 20100414
  Receipt Date: 20100414
  Transmission Date: 20101027
  Serious: Yes (Life-Threatening)
  Sender: FDA-Public Use
  Company Number: None

PATIENT
  Age: 28 Year
  Sex: Male
  Weight: 68.0396 kg

DRUGS (2)
  1. ADALIMUMAB 40MG ABBOTT [Suspect]
     Indication: CROHN'S DISEASE
     Dosage: 40MG EVERY 2 WEEKS SQ
     Route: 058
     Dates: start: 20070601, end: 20100413
  2. PURINETHOL [Concomitant]

REACTIONS (1)
  - MALIGNANT MELANOMA [None]
